FAERS Safety Report 6578244-2 (Version None)
Quarter: 2010Q1

REPORT INFORMATION
  Report Type: 
  Country: None (occurrence: None)
  Receive Date: 20100211
  Receipt Date: 20100205
  Transmission Date: 20100710
  Serious: Yes (Other)
  Sender: FDA-Public Use
  Company Number: A0843828A

PATIENT
  Age: 67 Year
  Sex: Male

DRUGS (4)
  1. AVANDIA [Suspect]
     Dosage: 8MG UNKNOWN
     Route: 048
  2. LANTUS [Suspect]
     Route: 042
  3. GLUCOPHAGE [Suspect]
     Route: 048
  4. GLIPIZIDE [Suspect]
     Route: 048

REACTIONS (3)
  - BLOOD GLUCOSE INCREASED [None]
  - DIABETES MELLITUS INADEQUATE CONTROL [None]
  - GLYCOSYLATED HAEMOGLOBIN INCREASED [None]
